FAERS Safety Report 23160006 (Version 1)
Quarter: 2023Q4

REPORT INFORMATION
  Report Type: Report from Study
  Country: US (occurrence: US)
  Receive Date: 20231108
  Receipt Date: 20231108
  Transmission Date: 20240109
  Serious: No
  Sender: FDA-Public Use
  Company Number: US-INCYTE CORPORATION-2023IN010433

PATIENT

DRUGS (1)
  1. JAKAFI [Suspect]
     Active Substance: RUXOLITINIB
     Dosage: 5 MILLIGRAM (1 TABLET IN THE MORNING AND 2 IN THE AFTERNOON)
     Route: 065

REACTIONS (2)
  - Abdominal pain upper [Unknown]
  - Rash [Unknown]
